FAERS Safety Report 18690499 (Version 1)
Quarter: 2020Q4

REPORT INFORMATION
  Report Type: Spontaneous
  Country: US (occurrence: US)
  Receive Date: 20201231
  Receipt Date: 20201231
  Transmission Date: 20210114
  Serious: No
  Sender: FDA-Public Use
  Company Number: US-P+L DEVELOPMENTS OF NEWYORK CORPORATION-2103757

PATIENT
  Sex: Female

DRUGS (2)
  1. OMALIZUMAB. [Concomitant]
     Active Substance: OMALIZUMAB
     Route: 065
  2. FEXOFENADINE HYDROCHLORIDE. [Suspect]
     Active Substance: FEXOFENADINE HYDROCHLORIDE
     Indication: URTICARIA CHRONIC
     Route: 065

REACTIONS (6)
  - Gastrooesophageal reflux disease [Unknown]
  - Headache [Unknown]
  - Condition aggravated [Recovering/Resolving]
  - Food intolerance [Unknown]
  - Drug resistance [Recovering/Resolving]
  - Abdominal distension [Unknown]
